FAERS Safety Report 6675511-9 (Version None)
Quarter: 2010Q2

REPORT INFORMATION
  Report Type: 
  Country: None (occurrence: None)
  Receive Date: 20100409
  Receipt Date: 20100406
  Transmission Date: 20101027
  Serious: Yes (Death, Other)
  Sender: FDA-Public Use
  Company Number: US-PURDUE-USA-2010-0043095

PATIENT
  Sex: Male

DRUGS (2)
  1. OXYCONTIN [Suspect]
     Indication: BACK PAIN
     Dosage: UNK
  2. ALCOHOL [Suspect]
     Indication: ALCOHOL USE

REACTIONS (4)
  - ALCOHOL USE [None]
  - DEATH [None]
  - INTENTIONAL DRUG MISUSE [None]
  - PAIN [None]
